FAERS Safety Report 24085778 (Version 1)
Quarter: 2024Q3

REPORT INFORMATION
  Report Type: Spontaneous
  Country: FR (occurrence: None)
  Receive Date: 20240712
  Receipt Date: 20240712
  Transmission Date: 20241016
  Serious: Yes (Other)
  Sender: ASTRAZENECA
  Company Number: 2024A159696

PATIENT
  Age: 53 Year
  Sex: Male

DRUGS (1)
  1. DURVALUMAB [Suspect]
     Active Substance: DURVALUMAB
     Indication: Non-small cell lung cancer
     Route: 042

REACTIONS (5)
  - Polyneuropathy [Unknown]
  - Asthenia [Unknown]
  - Decreased appetite [Unknown]
  - Epithelitis [Unknown]
  - Weight decreased [Unknown]
